FAERS Safety Report 10053049 (Version 1)
Quarter: 2014Q2

REPORT INFORMATION
  Report Type: Spontaneous
  Country: US (occurrence: US)
  Receive Date: 20140402
  Receipt Date: 20140402
  Transmission Date: 20141212
  Serious: Yes (Other)
  Sender: FDA-Public Use
  Company Number: CHPA2014US004682

PATIENT
  Sex: 0

DRUGS (1)
  1. BUCKLEY^S UNKNOWN [Suspect]
     Route: 048

REACTIONS (2)
  - Intentional product misuse [Unknown]
  - Euphoric mood [Unknown]
